FAERS Safety Report 17616871 (Version 3)
Quarter: 2020Q2

REPORT INFORMATION
  Report Type: Report from Study
  Country: US (occurrence: US)
  Receive Date: 20200402
  Receipt Date: 20200517
  Transmission Date: 20200713
  Serious: Yes (Hospitalization)
  Sender: FDA-Public Use
  Company Number: NVSC2020US084463

PATIENT
  Sex: Male

DRUGS (1)
  1. COSENTYX [Suspect]
     Active Substance: SECUKINUMAB
     Indication: PSORIASIS
     Dosage: 300 MG ONCE WEEKLY FOR 5 WEEKS (LOADING), THEN ONCE EVERY 4 WEEKS (MAINTENANCE)
     Route: 058
     Dates: start: 20190320

REACTIONS (4)
  - Thrombosis [Recovering/Resolving]
  - Sinusitis [Unknown]
  - Product storage error [Unknown]
  - Post procedural complication [Recovering/Resolving]
